FAERS Safety Report 9549547 (Version 1)
Quarter: 2013Q3

REPORT INFORMATION
  Report Type: Spontaneous
  Country: CA (occurrence: CA)
  Receive Date: 20130924
  Receipt Date: 20130924
  Transmission Date: 20140515
  Serious: Yes (Hospitalization, Disabling, Other)
  Sender: FDA-Public Use
  Company Number: CA-009507513-1309CAN009887

PATIENT
  Age: 65 Year
  Sex: Female
  Weight: 77 kg

DRUGS (7)
  1. FOSAMAX [Suspect]
     Indication: PRODUCT USED FOR UNKNOWN INDICATION
     Dosage: UNK, QW
     Route: 065
  2. FOSAVANCE [Suspect]
     Indication: PRODUCT USED FOR UNKNOWN INDICATION
     Dosage: UNK, QW
     Route: 065
  3. ASPIRIN [Concomitant]
     Route: 065
  4. CARBOCAL D [Concomitant]
     Route: 065
  5. DETROL [Concomitant]
     Route: 065
  6. JANUMET [Concomitant]
     Route: 065
  7. LIPITOR [Concomitant]

REACTIONS (3)
  - Atypical femur fracture [Unknown]
  - Stress fracture [Unknown]
  - Asthenia [Unknown]
